FAERS Safety Report 6687112-7 (Version None)
Quarter: 2010Q2

REPORT INFORMATION
  Report Type: 
  Country: None (occurrence: None)
  Receive Date: 20100419
  Receipt Date: 20100408
  Transmission Date: 20101027
  Serious: Yes (Hospitalization, Other)
  Sender: FDA-Public Use
  Company Number: JP-ROCHE-614085

PATIENT
  Sex: Male
  Weight: 65 kg

DRUGS (14)
  1. AVASTIN [Suspect]
     Indication: RECTAL CANCER METASTATIC
     Route: 041
     Dates: start: 20080801, end: 20081009
  2. AVASTIN [Suspect]
     Route: 041
     Dates: start: 20081029, end: 20081112
  3. FLUOROURACIL [Suspect]
     Indication: RECTAL CANCER METASTATIC
     Route: 041
     Dates: start: 20081029, end: 20081101
  4. FLUOROURACIL [Suspect]
     Dosage: ROUTE: INTRAVENOUS DRIP
     Route: 041
     Dates: start: 20090224, end: 20090422
  5. CALCIUM LEVOFOLINATE [Suspect]
     Indication: RECTAL CANCER METASTATIC
     Route: 041
     Dates: start: 20081029, end: 20081112
  6. CALCIUM LEVOFOLINATE [Suspect]
     Route: 041
     Dates: start: 20090407, end: 20090422
  7. GRANISETRON HYDROCHLORIDE [Suspect]
     Indication: RECTAL CANCER METASTATIC
     Route: 041
     Dates: start: 20081029, end: 20081112
  8. GRANISETRON HYDROCHLORIDE [Suspect]
     Route: 041
     Dates: start: 20090224, end: 20090421
  9. DEXART [Suspect]
     Indication: RECTAL CANCER METASTATIC
     Route: 041
     Dates: start: 20081029, end: 20081112
  10. DEXART [Suspect]
     Route: 041
     Dates: start: 20090224, end: 20090421
  11. IRINOTECAN HYDROCHLORIDE [Concomitant]
     Indication: RECTAL CANCER METASTATIC
     Dosage: EVENT: MUSCLE CRAMP
     Route: 041
     Dates: start: 20080801, end: 20081009
  12. TS-1 [Concomitant]
     Route: 048
     Dates: start: 20080801, end: 20081009
  13. AMLODIN [Concomitant]
     Dosage: DRUG: AMLODIPINE BESILATE.
     Route: 048
  14. DIOVAN [Concomitant]
     Route: 048

REACTIONS (3)
  - DECREASED APPETITE [None]
  - PYREXIA [None]
  - RENAL IMPAIRMENT [None]
